FAERS Safety Report 10388138 (Version 1)
Quarter: 2014Q3

REPORT INFORMATION
  Report Type: Spontaneous
  Country: US (occurrence: US)
  Receive Date: 20140815
  Receipt Date: 20140815
  Transmission Date: 20150326
  Serious: Yes (Hospitalization, Other)
  Sender: FDA-Public Use
  Company Number: US-B.I. PHARMACEUTICALS,INC./RIDGEFIELD-2014-BI-37420BP

PATIENT
  Age: 56 Year
  Sex: Female
  Weight: 81 kg

DRUGS (17)
  1. LASIX [Concomitant]
     Active Substance: FUROSEMIDE
     Dosage: 80 MG
     Route: 048
  2. LANTUS [Concomitant]
     Active Substance: INSULIN GLARGINE
     Dosage: 30 U
     Route: 065
  3. PRINZIDE [Concomitant]
     Active Substance: HYDROCHLOROTHIAZIDE\LISINOPRIL
     Dosage: DOSE PER APPLICATION: 20/25MG; DAILY DOSE: 20/25MG
     Route: 048
  4. CELEXA [Concomitant]
     Active Substance: CITALOPRAM HYDROBROMIDE
     Dosage: 20 MG
     Route: 048
  5. NOVOLOG [Concomitant]
     Active Substance: INSULIN ASPART
     Dosage: 45 U
     Route: 065
  6. IMDUR [Concomitant]
     Active Substance: ISOSORBIDE MONONITRATE
     Dosage: 30 MG
     Route: 048
  7. ECOTRIN [Concomitant]
     Active Substance: ASPIRIN
     Dosage: DOSE PER APPLICATION AND DAILY DOSE: 325
     Route: 048
  8. NITROSTAT [Concomitant]
     Active Substance: NITROGLYCERIN
     Indication: CHEST PAIN
     Route: 060
  9. FISH OIL OMEGA 3 [Concomitant]
     Dosage: STRENGTH: 300/1000MG; DAILY DOSE: 300/1000MG
     Route: 048
  10. FERROUS SULFATE [Concomitant]
     Active Substance: FERROUS SULFATE\FERROUS SULFATE, DRIED
     Dosage: 325 MG
     Route: 048
  11. PRAVACHOL [Concomitant]
     Active Substance: PRAVASTATIN SODIUM
     Dosage: 40 MG
     Route: 048
  12. ALDACTONE [Concomitant]
     Active Substance: SPIRONOLACTONE
     Dosage: 20 MG
     Route: 048
  13. THERAGRAN [Concomitant]
     Active Substance: VITAMINS
     Route: 048
  14. ZESTORETIC [Concomitant]
     Active Substance: HYDROCHLOROTHIAZIDE\LISINOPRIL
     Dosage: DOSE PER APPLICATION: 20/25MG; DAILY DOSE: 20/25MG
     Route: 048
  15. PRADAXA [Suspect]
     Active Substance: DABIGATRAN ETEXILATE MESYLATE
     Indication: PRODUCT USED FOR UNKNOWN INDICATION
     Dosage: 150 MG
     Route: 048
     Dates: end: 20111221
  16. NEXIUM [Concomitant]
     Active Substance: ESOMEPRAZOLE MAGNESIUM
     Dosage: 40 MG
     Route: 048
  17. TOPROL XL [Concomitant]
     Active Substance: METOPROLOL SUCCINATE
     Dosage: 100 MG
     Route: 048

REACTIONS (6)
  - Cerebral haemorrhage [Unknown]
  - Acute myocardial infarction [Unknown]
  - Anaemia [Unknown]
  - Haematuria [Unknown]
  - Gastrointestinal haemorrhage [Unknown]
  - Renal failure acute [Unknown]

NARRATIVE: CASE EVENT DATE: 201112
